FAERS Safety Report 9895565 (Version 2)
Quarter: 2014Q1

REPORT INFORMATION
  Report Type: Spontaneous
  Country: US (occurrence: US)
  Receive Date: 20140213
  Receipt Date: 20140213
  Transmission Date: 20141002
  Serious: No
  Sender: FDA-Public Use
  Company Number: US-BRISTOL-MYERS SQUIBB COMPANY-17293853

PATIENT
  Age: 46 Year
  Sex: Female
  Weight: 102.04 kg

DRUGS (1)
  1. ORENCIA [Suspect]
     Indication: RHEUMATOID ARTHRITIS
     Dosage: LAST DOSE ON 14JAN13
     Route: 042
     Dates: start: 20121217, end: 20130114

REACTIONS (2)
  - Respiratory tract infection [Unknown]
  - Tooth infection [Unknown]
